FAERS Safety Report 4670397-6 (Version None)
Quarter: 2005Q2

REPORT INFORMATION
  Report Type: 
  Country: None (occurrence: None)
  Receive Date: 20050520
  Receipt Date: 20050511
  Transmission Date: 20051028
  Serious: No
  Sender: FDA-Public Use
  Company Number: 2005-128218-NL

PATIENT
  Age: 42 Year
  Sex: Female

DRUGS (2)
  1. MIRTAZAPINE [Suspect]
     Indication: DEPRESSION
     Dosage: DF
     Route: 048
     Dates: start: 20050201
  2. FLECAINIDE ACETATE [Suspect]
     Indication: CARDIAC DISORDER
     Dosage: DF
     Route: 048

REACTIONS (2)
  - DRUG INTERACTION [None]
  - TACHYCARDIA [None]
